FAERS Safety Report 8329925-1 (Version None)
Quarter: 2012Q2

REPORT INFORMATION
  Report Type: 
  Country: None (occurrence: None)
  Receive Date: 20120502
  Receipt Date: 20120424
  Transmission Date: 20120825
  Serious: Yes (Hospitalization, Other)
  Sender: FDA-Public Use
  Company Number: JP-VERTEX PHARMACEUTICALS INC.-AE-2012-003278

PATIENT
  Age: 59 Year
  Sex: Female

DRUGS (15)
  1. PEGINTERFERON ALFA-2B [Concomitant]
     Indication: HEPATITIS C
     Route: 051
     Dates: start: 20120221, end: 20120221
  2. REBETOL [Concomitant]
     Route: 048
     Dates: start: 20120228, end: 20120228
  3. REBETOL [Concomitant]
     Route: 048
     Dates: start: 20120405
  4. REBETOL [Concomitant]
     Route: 048
     Dates: start: 20120308, end: 20120404
  5. TELAVIC (TELAPREVIR) [Suspect]
     Route: 048
     Dates: start: 20120308
  6. PEGINTERFERON ALFA-2B [Concomitant]
     Route: 051
     Dates: start: 20120329
  7. REBETOL [Concomitant]
     Indication: HEPATITIS C
     Route: 048
     Dates: start: 20120221, end: 20120225
  8. REBETOL [Concomitant]
     Route: 048
     Dates: start: 20120229, end: 20120307
  9. PEGINTERFERON ALFA-2B [Concomitant]
     Route: 051
     Dates: start: 20120301, end: 20120301
  10. TELAVIC (TELAPREVIR) [Suspect]
     Indication: HEPATITIS C
     Route: 048
     Dates: start: 20120221, end: 20120225
  11. PROMACTA [Concomitant]
     Route: 048
     Dates: start: 20060724
  12. TELAVIC (TELAPREVIR) [Suspect]
     Route: 048
     Dates: start: 20120302, end: 20120307
  13. PEGINTERFERON ALFA-2B [Concomitant]
     Route: 051
     Dates: start: 20120308, end: 20120322
  14. REBAMIPIDE [Concomitant]
     Route: 048
     Dates: start: 20111128
  15. LOXONIN [Concomitant]
     Route: 048
     Dates: start: 20120225

REACTIONS (3)
  - DIARRHOEA [None]
  - DELIRIUM [None]
  - SOMNOLENCE [None]
